FAERS Safety Report 12912383 (Version 3)
Quarter: 2017Q1

REPORT INFORMATION
  Report Type: Report from Study
  Country: US (occurrence: US)
  Receive Date: 20161104
  Receipt Date: 20170328
  Transmission Date: 20170428
  Serious: No
  Sender: FDA-Public Use
  Company Number: US-MALLINCKRODT-T201605175

PATIENT
  Age: 70 Year
  Sex: Male

DRUGS (23)
  1. ASPIRIN (E.C.) [Concomitant]
     Active Substance: ASPIRIN
     Dosage: 81MG TABLET DAILY
     Route: 048
  2. VENTOLIN NEBULAS [Concomitant]
     Dosage: 1.25MG/3ML 1VIAL EVERY 6 HRS  AS NEEDED
  3. ATENOLOL. [Concomitant]
     Active Substance: ATENOLOL
     Dosage: 50 MG ONE TAB IN AM AND HALF TAB IN PM
     Route: 048
  4. NU-IRON [Concomitant]
     Active Substance: FERRIC POLYSACCHARIDE COMPLEX
     Dosage: 150 MG TWICE DAILY
     Route: 048
  5. OMEPRAZOLE. [Concomitant]
     Active Substance: OMEPRAZOLE
     Dosage: 40MG,1 CAPSULE DAILY
     Route: 048
  6. TEMAZEPAM. [Concomitant]
     Active Substance: TEMAZEPAM
     Dosage: 30 MG,1 CAPSULE AS NEEDED IN THE NIGHT
     Route: 048
  7. CEFUROXIME. [Concomitant]
     Active Substance: CEFUROXIME
     Dosage: 1 TABLET TWICE DAILY
     Route: 048
  8. CHERATUSSIN [Concomitant]
     Active Substance: AMMONIUM CHLORIDE\DEXTROMETHORPHAN\SODIUM CITRATE
     Dosage: 5 TO 10ML EVERY 4 TO 6 HOURS AS NEEDED
     Route: 048
  9. CLONIDINE. [Concomitant]
     Active Substance: CLONIDINE
     Dosage: 0.2 MG TWICE DAILY
     Route: 048
  10. XEROFORM SPX [Concomitant]
  11. FUROSEMIDE. [Concomitant]
     Active Substance: FUROSEMIDE
     Dosage: 40 MG 1 TABLET TWICE DAILY
     Route: 048
  12. POTASSIUM CHLORIDE. [Concomitant]
     Active Substance: POTASSIUM CHLORIDE
     Dosage: 10MEQ 1 TABLET THREE TIMES DAILY
     Route: 048
  13. CYANOCOBALAMIN. [Concomitant]
     Active Substance: CYANOCOBALAMIN
     Dosage: 1500MCG DAILY
     Route: 048
  14. DILTIAZEM. [Concomitant]
     Active Substance: DILTIAZEM
     Dosage: 120 MG 1 TABLET  THRICE DAILY
     Route: 048
  15. METOLAZONE. [Concomitant]
     Active Substance: METOLAZONE
     Dosage: 2.5 MG TABLET THREE TIMES A WEEK
     Route: 048
  16. MULTIVITAMIN                       /00097801/ [Concomitant]
     Active Substance: VITAMINS
     Dosage: 1 TABLET DAILY
     Route: 048
  17. REPOSITORY CORTICOTROPIN INJECTION [Suspect]
     Active Substance: CORTICOTROPIN
     Indication: FOCAL SEGMENTAL GLOMERULOSCLEROSIS
     Dosage: 40UNITS/ 0.5ML TWICE PER WEEK (MON+THUR)
     Route: 030
     Dates: start: 20160901
  18. ALBUTEROL HFA [Concomitant]
     Active Substance: ALBUTEROL SULFATE
     Indication: WHEEZING
     Dosage: TWO PUFFS IN LUNGS EVERY 6 HRS AS NEEDED
  19. ATORVASTATIN [Concomitant]
     Active Substance: ATORVASTATIN
     Dosage: 1 TABLET BY MOUTH DAILY
     Route: 048
  20. PREDNISONE. [Concomitant]
     Active Substance: PREDNISONE
  21. ASCORBIC ACID. [Concomitant]
     Active Substance: ASCORBIC ACID
     Dosage: 1000MG TWICE DAILY
     Route: 048
  22. LOSARTAN. [Concomitant]
     Active Substance: LOSARTAN
     Dosage: 100MG TABLET DAILY
     Route: 048
  23. ROPINIROLE. [Concomitant]
     Active Substance: ROPINIROLE
     Dosage: 0.25MG, UP TO 8 TABLETS PER DAY AS NEEDED
     Route: 048

REACTIONS (13)
  - Lymphoedema [Recovering/Resolving]
  - Malaise [Not Recovered/Not Resolved]
  - Weight increased [Not Recovered/Not Resolved]
  - Erythema [Recovering/Resolving]
  - Balance disorder [Not Recovered/Not Resolved]
  - Muscular weakness [Not Recovered/Not Resolved]
  - Peripheral swelling [Not Recovered/Not Resolved]
  - Asthenia [Not Recovered/Not Resolved]
  - Fall [Recovering/Resolving]
  - Limb injury [Unknown]
  - Blood blister [Not Recovered/Not Resolved]
  - Hyperhidrosis [Recovering/Resolving]
  - Dysgeusia [Not Recovered/Not Resolved]

NARRATIVE: CASE EVENT DATE: 20161010
